FAERS Safety Report 23918572 (Version 1)
Quarter: 2024Q2

REPORT INFORMATION
  Report Type: Spontaneous
  Country: US (occurrence: None)
  Receive Date: 20240530
  Receipt Date: 20240530
  Transmission Date: 20240716
  Serious: Yes (Other)
  Sender: FDA-Public Use
  Company Number: US-ROCHE-3569075

PATIENT
  Age: 73 Year
  Sex: Male

DRUGS (1)
  1. VABYSMO [Suspect]
     Active Substance: FARICIMAB\FARICIMAB-SVOA
     Indication: Polypoidal choroidal vasculopathy
     Route: 065

REACTIONS (5)
  - Off label use [Unknown]
  - Chorioretinitis [Unknown]
  - Hypopyon [Unknown]
  - Vitritis [Unknown]
  - Iridocyclitis [Unknown]

NARRATIVE: CASE EVENT DATE: 20231015
